FAERS Safety Report 25833851 (Version 1)
Quarter: 2025Q3

REPORT INFORMATION
  Report Type: Report from Study
  Country: CA (occurrence: CA)
  Receive Date: 20250923
  Receipt Date: 20250923
  Transmission Date: 20251021
  Serious: Yes (Hospitalization)
  Sender: ABBVIE
  Company Number: CA-ABBVIE-6467033

PATIENT
  Age: 63 Year
  Sex: Male

DRUGS (2)
  1. SKYRIZI [Suspect]
     Active Substance: RISANKIZUMAB-RZAA
     Indication: Crohn^s disease
     Dosage: RECEIVE SKYRIZI IV 600 MG ONCE A MONTH FROM JUNE TO AUGUST.
     Route: 042
     Dates: start: 20250604, end: 20250604
  2. SKYRIZI [Suspect]
     Active Substance: RISANKIZUMAB-RZAA
     Indication: Crohn^s disease
     Dosage: 3 PERFUSIONS 600MG IV EVERY 4 WEEKS
     Route: 042
     Dates: start: 20250626, end: 20250626

REACTIONS (3)
  - Constipation [Unknown]
  - Vomiting [Unknown]
  - Obstruction [Unknown]

NARRATIVE: CASE EVENT DATE: 20250101
